FAERS Safety Report 5356570-2 (Version None)
Quarter: 2007Q2

REPORT INFORMATION
  Report Type: 
  Country: None (occurrence: None)
  Receive Date: 20070613
  Receipt Date: 20070605
  Transmission Date: 20071010
  Serious: Yes (Hospitalization, Other)
  Sender: FDA-Public Use
  Company Number: PHEH2007US06502

PATIENT
  Age: 42 Year
  Weight: 75.736 kg

DRUGS (4)
  1. ZELNORM [Suspect]
     Indication: CONSTIPATION
     Dosage: 3 MG, BID
     Route: 048
     Dates: start: 20060707, end: 20070414
  2. KLONOPIN [Concomitant]
     Dosage: UNK, UNK
  3. VITAMIN CAP [Concomitant]
     Dosage: UNK, UNK
  4. EXCEDRIN [Concomitant]
     Dosage: UNK, 3-4 TIMES PER WK

REACTIONS (14)
  - BACK PAIN [None]
  - BACTERIAL INFECTION [None]
  - BRONCHITIS [None]
  - CARDIAC DISORDER [None]
  - CARDIAC STRESS TEST ABNORMAL [None]
  - CHEST PAIN [None]
  - DYSPEPSIA [None]
  - DYSPNOEA [None]
  - ECHOCARDIOGRAM NORMAL [None]
  - EPIGASTRIC DISCOMFORT [None]
  - GASTRITIS [None]
  - GASTROOESOPHAGEAL REFLUX DISEASE [None]
  - LOWER RESPIRATORY TRACT INFECTION [None]
  - NAUSEA [None]
